FAERS Safety Report 23305274 (Version 1)
Quarter: 2023Q4

REPORT INFORMATION
  Report Type: Spontaneous
  Country: US (occurrence: US)
  Receive Date: 20231218
  Receipt Date: 20231218
  Transmission Date: 20240110
  Serious: Yes (Other)
  Sender: FDA-Public Use
  Company Number: US-GLENMARK PHARMACEUTICALS-2023GMK087278

PATIENT

DRUGS (1)
  1. FINGOLIMOD HYDROCHLORIDE [Suspect]
     Active Substance: FINGOLIMOD HYDROCHLORIDE
     Indication: Relapsing-remitting multiple sclerosis
     Dosage: UNK
     Route: 065
     Dates: start: 201204, end: 2022

REACTIONS (3)
  - Lymphoproliferative disorder [Recovering/Resolving]
  - CD30 expression [Recovering/Resolving]
  - Lymphomatoid papulosis [Recovering/Resolving]

NARRATIVE: CASE EVENT DATE: 20220101
